FAERS Safety Report 25192494 (Version 1)
Quarter: 2025Q2

REPORT INFORMATION
  Report Type: Other
  Country: PL (occurrence: PL)
  Receive Date: 20250414
  Receipt Date: 20250414
  Transmission Date: 20250717
  Serious: Yes (Other)
  Sender: LYNE LABORATORIES
  Company Number: PL-Lyne Laboratories Inc.-2174802

PATIENT
  Sex: Male
  Weight: 40 kg

DRUGS (9)
  1. DEXAMETHASONE [Suspect]
     Active Substance: DEXAMETHASONE
     Indication: Haemophagocytic lymphohistiocytosis
  2. ETOPOSIDE [Suspect]
     Active Substance: ETOPOSIDE
  3. CYCLOSPORINE [Concomitant]
     Active Substance: CYCLOSPORINE
  4. TREOSULFAN [Concomitant]
     Active Substance: TREOSULFAN
  5. FLUDARABINE [Concomitant]
     Active Substance: FLUDARABINE PHOSPHATE
  6. GANCICLOVIR [Concomitant]
     Active Substance: GANCICLOVIR
  7. METHYLPREDNISOLONE [Concomitant]
     Active Substance: METHYLPREDNISOLONE
  8. Immunoglobulins [Concomitant]
  9. CYCLOSPORINE [Suspect]
     Active Substance: CYCLOSPORINE

REACTIONS (3)
  - Renal failure [Unknown]
  - Product use in unapproved indication [Unknown]
  - N-terminal prohormone brain natriuretic peptide increased [Unknown]
